FAERS Safety Report 10486755 (Version 1)
Quarter: 2014Q4

REPORT INFORMATION
  Report Type: Spontaneous
  Country: US (occurrence: US)
  Receive Date: 20141001
  Receipt Date: 20141001
  Transmission Date: 20150528
  Serious: Yes (Other)
  Sender: FDA-Public Use
  Company Number: 2014SP003039

PATIENT
  Age: 22 Year
  Sex: Male

DRUGS (2)
  1. ANTIPSYCHOTICS [Concomitant]
     Active Substance: UNSPECIFIED INGREDIENT
  2. LATUDA [Suspect]
     Active Substance: LURASIDONE HYDROCHLORIDE
     Indication: BIPOLAR I DISORDER
     Route: 048
     Dates: start: 2014

REACTIONS (3)
  - Hyperglycaemia [Unknown]
  - Ketoacidosis [Unknown]
  - Type 1 diabetes mellitus [Unknown]
